FAERS Safety Report 9514929 (Version 1)
Quarter: 2013Q3

REPORT INFORMATION
  Report Type: Spontaneous
  Country: US (occurrence: None)
  Receive Date: 20130909
  Receipt Date: 20130909
  Transmission Date: 20140515
  Serious: Yes (Hospitalization)
  Sender: FDA-Public Use
  Company Number: 2013080191

PATIENT
  Age: 65 Year
  Sex: Male

DRUGS (2)
  1. MESALAMINE [Suspect]
     Indication: COLITIS ULCERATIVE
     Dosage: 4.8 GM (1.2 GM, 4 IN 1 D)
  2. NSAID^S NON-STEROIDAL ANTI-INFLAMATORIES) [Concomitant]

REACTIONS (7)
  - Pleural effusion [None]
  - Respiratory distress [None]
  - Interstitial lung disease [None]
  - Pulmonary toxicity [None]
  - Anxiety [None]
  - Blood pressure decreased [None]
  - Blood pH increased [None]
